FAERS Safety Report 7579386-5 (Version None)
Quarter: 2011Q2

REPORT INFORMATION
  Report Type: 
  Country: None (occurrence: None)
  Receive Date: 20110629
  Receipt Date: 20110620
  Transmission Date: 20111010
  Serious: Yes (Hospitalization)
  Sender: FDA-Public Use
  Company Number: US-BIOGENIDEC-2011BI017525

PATIENT
  Age: 62 Year
  Sex: Female
  Weight: 68 kg

DRUGS (7)
  1. FOSAMAX [Concomitant]
     Route: 048
  2. SYNTHROID [Concomitant]
     Route: 048
  3. LOVAZA [Concomitant]
     Route: 048
  4. PHENOBARBITAL TAB [Concomitant]
     Route: 048
  5. CALCIUM GLUCONATE [Concomitant]
     Route: 048
  6. ZOCOR [Concomitant]
     Route: 048
  7. TYSABRI [Suspect]
     Indication: MULTIPLE SCLEROSIS
     Route: 042
     Dates: start: 20090122, end: 20110420

REACTIONS (3)
  - DEHYDRATION [None]
  - LIVER INJURY [None]
  - VERTIGO [None]
